FAERS Safety Report 4382059-3 (Version None)
Quarter: 2004Q2

REPORT INFORMATION
  Report Type: 
  Country: None (occurrence: None)
  Receive Date: 20040615
  Receipt Date: 20040526
  Transmission Date: 20050107
  Serious: Yes (Hospitalization)
  Sender: FDA-Public Use
  Company Number: A0384041A

PATIENT
  Age: 47 Year
  Sex: Male
  Weight: 83.9154 kg

DRUGS (2)
  1. NICORETTE [Suspect]
     Indication: EX-SMOKER
     Dosage: 4 MG/TWELVE TIMES PER DAY/ORAL
     Route: 048
  2. FLUOXETINE HCL [Suspect]
     Dosage: ORAL
     Route: 048
     Dates: start: 20020403

REACTIONS (16)
  - ALANINE AMINOTRANSFERASE INCREASED [None]
  - AMNESIA [None]
  - ASTHENIA [None]
  - BLOOD CREATININE INCREASED [None]
  - CONCUSSION [None]
  - DILATATION VENTRICULAR [None]
  - DIZZINESS [None]
  - ELECTROCARDIOGRAM QT PROLONGED [None]
  - ELECTROCARDIOGRAM T WAVE INVERSION [None]
  - FLUSHING [None]
  - HEART RATE INCREASED [None]
  - LOSS OF CONSCIOUSNESS [None]
  - MEDICATION ERROR [None]
  - MIGRAINE [None]
  - MITRAL VALVE INCOMPETENCE [None]
  - SYNCOPE [None]
